FAERS Safety Report 4428481-8 (Version None)
Quarter: 2004Q3

REPORT INFORMATION
  Report Type: 
  Country: None (occurrence: None)
  Receive Date: 20040816
  Receipt Date: 20040804
  Transmission Date: 20050211
  Serious: Yes (Hospitalization)
  Sender: FDA-Public Use
  Company Number: 04H-163-0269257-00

PATIENT
  Sex: Female

DRUGS (1)
  1. BUPIVACAINE HCL [Suspect]
     Indication: ANAESTHESIA
     Dosage: METACARPAL BLOCK
     Dates: start: 20040601, end: 20040601

REACTIONS (3)
  - BLISTER [None]
  - COMPARTMENT SYNDROME [None]
  - RASH [None]
